FAERS Safety Report 5504038-2 (Version None)
Quarter: 2008Q1

REPORT INFORMATION
  Report Type: 
  Country: None (occurrence: None)
  Receive Date: 20071030
  Receipt Date: 20071017
  Transmission Date: 20080703
  Serious: Yes (Hospitalization)
  Sender: FDA-Public Use
  Company Number: 163028USA

PATIENT
  Age: 56 Year
  Sex: Female

DRUGS (8)
  1. FLUOROURACIL [Suspect]
     Indication: COLORECTAL CANCER METASTATIC
     Dosage: EVERY TWO WEEKS (2693 MG), INTRAVENOUS (NOT OTHERWISE SPECIFIED)
     Dates: start: 20070613
  2. LEUCOVORIN CALCIUM [Suspect]
     Indication: COLORECTAL CANCER METASTATIC
     Dosage: EVERY TWO WEEKS (684 MG), INTRAVENOUS (NOT OTHERWISE SPECIFIED)
     Dates: start: 20070613
  3. CETUXIMAB [Suspect]
     Indication: COLORECTAL CANCER METASTATIC
     Dosage: WEEKLY (342 MG), INTRAVENOUS
     Route: 042
     Dates: start: 20070613
  4. BEVACIZUMAB [Suspect]
     Indication: COLORECTAL CANCER METASTATIC
     Dosage: EVERY TWO WEEKS (342 MG), INTRAVENOUS (NOT OTHERWISE SPECIFIED)
     Dates: start: 20070613
  5. DIPHENHYDRAMINE HYDROCHLORIDE [Concomitant]
  6. PALONOSETRON HYDROCHLORIDE [Concomitant]
  7. DEXAMETHASONE [Concomitant]
  8. WARFARIN SODIUM [Concomitant]

REACTIONS (2)
  - GENERAL PHYSICAL HEALTH DETERIORATION [None]
  - SMALL INTESTINAL OBSTRUCTION [None]
